FAERS Safety Report 25032302 (Version 1)
Quarter: 2025Q1

REPORT INFORMATION
  Report Type: Spontaneous
  Country: CA (occurrence: CA)
  Receive Date: 20250303
  Receipt Date: 20250303
  Transmission Date: 20250409
  Serious: Yes (Death)
  Sender: CHATTEM
  Company Number: CA-OPELLA-2025OHG005693

PATIENT
  Sex: Female

DRUGS (13)
  1. TRIAMCINOLONE ACETONIDE [Suspect]
     Active Substance: TRIAMCINOLONE ACETONIDE
     Indication: Product used for unknown indication
     Route: 014
  2. FOLIC ACID [Suspect]
     Active Substance: FOLIC ACID
     Indication: Product used for unknown indication
  3. FOLIC ACID [Suspect]
     Active Substance: FOLIC ACID
  4. FOLIC ACID [Suspect]
     Active Substance: FOLIC ACID
  5. FOLIC ACID [Suspect]
     Active Substance: FOLIC ACID
  6. FOLIC ACID [Suspect]
     Active Substance: FOLIC ACID
     Dosage: NOT SPECIFIED
     Route: 048
  7. FOLIC ACID [Suspect]
     Active Substance: FOLIC ACID
     Route: 049
  8. FOLIC ACID [Suspect]
     Active Substance: FOLIC ACID
  9. FOLIC ACID [Suspect]
     Active Substance: FOLIC ACID
     Route: 048
  10. FOLIC ACID [Suspect]
     Active Substance: FOLIC ACID
     Route: 048
  11. FOLIC ACID [Suspect]
     Active Substance: FOLIC ACID
  12. SALICYLIC ACID [Suspect]
     Active Substance: SALICYLIC ACID
     Indication: Product used for unknown indication
  13. CALCIUM CARBONATE [Suspect]
     Active Substance: CALCIUM CARBONATE
     Indication: Product used for unknown indication
     Route: 016

REACTIONS (1)
  - Rash [Fatal]
